FAERS Safety Report 21266623 (Version 2)
Quarter: 2022Q3

REPORT INFORMATION
  Report Type: Spontaneous
  Country: AR (occurrence: AR)
  Receive Date: 20220829
  Receipt Date: 20220923
  Transmission Date: 20221026
  Serious: Yes (Death, Other)
  Sender: FDA-Public Use
  Company Number: AR-BIOMARINAP-AR-2022-144740

PATIENT

DRUGS (1)
  1. NAGLAZYME [Suspect]
     Active Substance: GALSULFASE
     Indication: Mucopolysaccharidosis VI
     Dosage: UNK, QW
     Route: 042
     Dates: start: 20110901

REACTIONS (3)
  - Pulmonary oedema [Fatal]
  - Cardio-respiratory arrest [Unknown]
  - Fluid retention [Unknown]

NARRATIVE: CASE EVENT DATE: 20220726
